FAERS Safety Report 7058536-3 (Version None)
Quarter: 2010Q4

REPORT INFORMATION
  Report Type: 
  Country: None (occurrence: None)
  Receive Date: 20101022
  Receipt Date: 20101015
  Transmission Date: 20110411
  Serious: Yes (Hospitalization)
  Sender: FDA-Public Use
  Company Number: A0810021A

PATIENT
  Age: 48 Year
  Sex: Female
  Weight: 121.8 kg

DRUGS (9)
  1. AVANDIA [Suspect]
     Dosage: 4MG PER DAY
     Route: 048
     Dates: start: 20041115, end: 20070101
  2. GLUCOPHAGE [Concomitant]
     Dates: end: 20061019
  3. ZOLOFT [Concomitant]
  4. RANITIDINE [Concomitant]
  5. ASPIRIN [Concomitant]
  6. LIPITOR [Concomitant]
  7. METOPROLOL [Concomitant]
  8. ALTACE [Concomitant]
  9. LEXAPRO [Concomitant]

REACTIONS (2)
  - CORONARY ARTERY DISEASE [None]
  - MYOCARDIAL INFARCTION [None]
